FAERS Safety Report 6543384-0 (Version None)
Quarter: 2010Q1

REPORT INFORMATION
  Report Type: 
  Country: None (occurrence: None)
  Receive Date: 20100106
  Receipt Date: 20091228
  Transmission Date: 20100710
  Serious: No
  Sender: FDA-Public Use
  Company Number: 2009-00909

PATIENT
  Age: 69 Year
  Sex: Male
  Weight: 90.7194 kg

DRUGS (2)
  1. COLD REMEDY ORAL MIST [Suspect]
     Dosage: QD
     Dates: start: 20091220, end: 20091220
  2. PREVACID [Concomitant]

REACTIONS (1)
  - AGEUSIA [None]
